FAERS Safety Report 5374155-9 (Version None)
Quarter: 2007Q2

REPORT INFORMATION
  Report Type: 
  Country: None (occurrence: None)
  Receive Date: 20070627
  Receipt Date: 20070619
  Transmission Date: 20071010
  Serious: Yes (Death)
  Sender: FDA-Public Use
  Company Number: 16812

PATIENT
  Age: 75 Year
  Sex: Female

DRUGS (3)
  1. METHOTREXATE [Suspect]
     Indication: ARTHROPATHY
     Dosage: 15 MG WEEKLY;
  2. METHOTREXATE [Suspect]
     Indication: RHEUMATOID ARTHRITIS
     Dosage: 15 MG WEEKLY;
  3. AMINOGLYCOSIDE [Suspect]

REACTIONS (9)
  - BONE MARROW FAILURE [None]
  - BONE MARROW TOXICITY [None]
  - DRUG INTERACTION [None]
  - GLOSSITIS [None]
  - ODYNOPHAGIA [None]
  - ORAL MUCOSAL PETECHIAE [None]
  - PANCYTOPENIA [None]
  - PNEUMONIA [None]
  - SEPSIS [None]
